FAERS Safety Report 8046215-5 (Version None)
Quarter: 2012Q1

REPORT INFORMATION
  Report Type: 
  Country: None (occurrence: None)
  Receive Date: 20120113
  Receipt Date: 20120113
  Transmission Date: 20120608
  Serious: Yes (Hospitalization, Other)
  Sender: FDA-Public Use
  Company Number: DE-AMGEN-DEUSP2011064604

PATIENT
  Age: 58 Year
  Sex: Female
  Weight: 85 kg

DRUGS (6)
  1. METOPROLOL TARTRATE [Concomitant]
     Indication: HYPERTENSION
     Route: 048
  2. FLUTICASONE PROPIONATE/SALMETEROL [Concomitant]
     Indication: ASTHMA
     Route: 055
  3. NPLATE [Suspect]
     Indication: IDIOPATHIC THROMBOCYTOPENIC PURPURA
     Dosage: 0.17 UNK, UNK
     Route: 058
     Dates: start: 20111118, end: 20111223
  4. ZOPICLON 7.5 [Concomitant]
     Indication: SLEEP DISORDER
     Route: 048
  5. LEVOTHYROXINE SODIUM [Concomitant]
     Indication: GOITRE
     Route: 048
  6. OMELICH [Concomitant]
     Indication: GASTROOESOPHAGEAL REFLUX DISEASE
     Route: 048

REACTIONS (6)
  - PLATELET COUNT INCREASED [None]
  - PLATELET COUNT DECREASED [None]
  - MOUTH HAEMORRHAGE [None]
  - HOSPITALISATION [None]
  - HEADACHE [None]
  - SLEEP DISORDER [None]
